FAERS Safety Report 25632910 (Version 1)
Quarter: 2025Q3

REPORT INFORMATION
  Report Type: Spontaneous
  Country: US (occurrence: US)
  Receive Date: 20250801
  Receipt Date: 20250801
  Transmission Date: 20251021
  Serious: No
  Sender: GRIFOLS
  Company Number: US-IGSA-BIG0035096

PATIENT
  Sex: Male

DRUGS (8)
  1. GAMUNEX-C [Suspect]
     Active Substance: HUMAN IMMUNOGLOBULIN G
     Indication: Product used for unknown indication
     Route: 065
  2. DUPIXENT [Concomitant]
     Active Substance: DUPILUMAB
  3. METHYLPREDNISOLONE [Concomitant]
     Active Substance: METHYLPREDNISOLONE
  4. EPINEPHRINE [Concomitant]
     Active Substance: EPINEPHRINE
  5. HEPARIN SODIUM [Concomitant]
     Active Substance: HEPARIN SODIUM
  6. DEXTROSE [Concomitant]
     Active Substance: DEXTROSE MONOHYDRATE
  7. DIPHENHYDRAMINE [Concomitant]
     Active Substance: DIPHENHYDRAMINE
  8. ACETAMINOPHEN [Concomitant]
     Active Substance: ACETAMINOPHEN

REACTIONS (1)
  - Headache [Unknown]
